FAERS Safety Report 8822810 (Version 2)
Quarter: 2015Q2

REPORT INFORMATION
  Report Type: Report from Study
  Country: US (occurrence: US)
  Receive Date: 20121003
  Receipt Date: 20150425
  Transmission Date: 20150821
  Serious: Yes (Death, Hospitalization, Other)
  Sender: FDA-Public Use
  Company Number: US-ROCHE-1130966

PATIENT
  Sex: Female

DRUGS (8)
  1. TYLENOL [Concomitant]
     Active Substance: ACETAMINOPHEN
     Route: 048
  2. ZANTAC [Concomitant]
     Active Substance: RANITIDINE HYDROCHLORIDE
     Route: 065
  3. CYTOXAN [Concomitant]
     Active Substance: CYCLOPHOSPHAMIDE
     Route: 042
  4. RITUXAN [Suspect]
     Active Substance: RITUXIMAB
     Indication: NON-HODGKIN^S LYMPHOMA
     Route: 042
     Dates: start: 20070426
  5. ANZEMET [Concomitant]
     Active Substance: DOLASETRON MESYLATE
     Route: 065
  6. RITUXAN [Suspect]
     Active Substance: RITUXIMAB
     Indication: LYMPHOMA
     Route: 042
  7. BENADRYL [Concomitant]
     Active Substance: DIPHENHYDRAMINE HYDROCHLORIDE
     Route: 048
  8. TYLENOL [Concomitant]
     Active Substance: ACETAMINOPHEN
     Route: 048

REACTIONS (18)
  - Death [Fatal]
  - Cold type haemolytic anaemia [Unknown]
  - Chest pain [Unknown]
  - Atrophy [Unknown]
  - Haemolytic anaemia [Unknown]
  - Splenomegaly [Unknown]
  - Nodule [Unknown]
  - Off label use [Unknown]
  - Anxiety [Unknown]
  - Asthenia [Unknown]
  - Haemolysis [Unknown]
  - Pain [Unknown]
  - Urinary tract infection [Unknown]
  - Nausea [Unknown]
  - Haemoglobin decreased [Unknown]
  - Fatigue [Unknown]
  - Leukoencephalopathy [Unknown]
  - Back pain [Unknown]
